FAERS Safety Report 4634927-2 (Version None)
Quarter: 2005Q2

REPORT INFORMATION
  Report Type: 
  Country: None (occurrence: None)
  Receive Date: 20050414
  Receipt Date: 20050411
  Transmission Date: 20051028
  Serious: Yes (Death)
  Sender: FDA-Public Use
  Company Number: US-JNJFOC-20050306061

PATIENT
  Sex: Male
  Weight: 86.18 kg

DRUGS (2)
  1. DURAGESIC-100 [Suspect]
     Indication: DRUG USE FOR UNKNOWN INDICATION
     Route: 062
  2. NORPROPOXYPHENE [Suspect]
     Indication: DRUG USE FOR UNKNOWN INDICATION

REACTIONS (6)
  - BRAIN HERNIATION [None]
  - BRAIN OEDEMA [None]
  - BRONCHOPNEUMONIA [None]
  - DRUG ABUSER [None]
  - OVERDOSE [None]
  - PULMONARY OEDEMA [None]
